FAERS Safety Report 4658913-1 (Version None)
Quarter: 2005Q2

REPORT INFORMATION
  Report Type: 
  Country: None (occurrence: None)
  Receive Date: 20050509
  Receipt Date: 20050425
  Transmission Date: 20051028
  Serious: Yes (Hospitalization)
  Sender: FDA-Public Use
  Company Number: WAES 00064160

PATIENT
  Age: 74 Year
  Sex: Male

DRUGS (11)
  1. NAPROXEN [Suspect]
     Indication: DEMENTIA ALZHEIMER'S TYPE
     Dosage: 200 MG/BID/PO
     Route: 048
     Dates: start: 20000420, end: 20000427
  2. PLACEBO (UNSPECIFIED) [Suspect]
     Indication: DEMENTIA ALZHEIMER'S TYPE
     Dosage: PO
     Route: 048
     Dates: start: 20000420, end: 20000427
  3. ARICEPT [Concomitant]
  4. ASPIRIN [Concomitant]
  5. GLUCOPHAGE [Concomitant]
  6. MICRONASE [Concomitant]
  7. ZESTRIL [Concomitant]
  8. ATENOLOL [Concomitant]
  9. ATENOLOL AND CHLORTHALIDONE [Concomitant]
  10. CHOLESTYRAMINE [Concomitant]
  11. VITAMIN E [Concomitant]

REACTIONS (4)
  - CONDITION AGGRAVATED [None]
  - CONFUSIONAL STATE [None]
  - HYPERKALAEMIA [None]
  - HYPOGLYCAEMIA [None]
